FAERS Safety Report 11475022 (Version 1)
Quarter: 2015Q3

REPORT INFORMATION
  Report Type: Spontaneous
  Country: US (occurrence: None)
  Receive Date: 20150902
  Receipt Date: 20150902
  Transmission Date: 20151125
  Serious: Yes (Hospitalization)
  Sender: FDA-Public Use
  Company Number: A-US2014-110657

PATIENT
  Age: 69 Year
  Sex: Female

DRUGS (3)
  1. VELETRI [Suspect]
     Active Substance: EPOPROSTENOL
     Indication: PULMONARY ARTERIAL HYPERTENSION
     Dosage: 20 NG/KG, PER MIN, INTRAVENOUS
     Route: 042
     Dates: start: 20140321
  2. LETAIRIS [Concomitant]
     Active Substance: AMBRISENTAN
  3. OXYGEN (OXYGEN) [Concomitant]
     Active Substance: OXYGEN

REACTIONS (4)
  - Catheter site erythema [None]
  - Catheter site inflammation [None]
  - Catheter site rash [None]
  - Catheter site infection [None]
